FAERS Safety Report 9432032 (Version 3)
Quarter: 2013Q3

REPORT INFORMATION
  Report Type: Spontaneous
  Country: FR (occurrence: FR)
  Receive Date: 20130731
  Receipt Date: 20130902
  Transmission Date: 20140515
  Serious: No
  Sender: FDA-Public Use
  Company Number: FR-JNJFOC-20130711496

PATIENT
  Age: 91 Year
  Sex: Female
  Weight: 40.4 kg

DRUGS (6)
  1. DUROGESIC [Suspect]
     Indication: PAIN
     Dosage: 75UG/HR + 12.5UG/HR
     Route: 062
     Dates: start: 20130530
  2. DUROGESIC [Suspect]
     Indication: PAIN
     Route: 062
     Dates: start: 2011
  3. PLAVIX [Concomitant]
     Indication: CEREBROVASCULAR ACCIDENT
     Route: 048
     Dates: start: 2009
  4. SERESTA [Concomitant]
     Indication: ANXIETY
     Route: 048
     Dates: start: 201202
  5. SEROPLEX [Concomitant]
     Indication: DEPRESSION
     Route: 048
     Dates: start: 201301
  6. LEVETIRACETAM [Concomitant]
     Indication: EPILEPSY
     Route: 048
     Dates: start: 201305

REACTIONS (6)
  - Wrong technique in drug usage process [Recovered/Resolved]
  - Somnolence [Unknown]
  - Asthenia [Unknown]
  - Hypotension [Unknown]
  - Overdose [Unknown]
  - General physical health deterioration [Unknown]
